FAERS Safety Report 8555270-5 (Version None)
Quarter: 2012Q3

REPORT INFORMATION
  Report Type: 
  Country: None (occurrence: None)
  Receive Date: 20120731
  Receipt Date: 20110824
  Transmission Date: 20120928
  Serious: No
  Sender: FDA-Public Use
  Company Number: US-ASTRAZENECA-2011SE51196

PATIENT
  Age: 48 Year
  Sex: Female
  Weight: 76.2 kg

DRUGS (3)
  1. IBUPROFEN (ADVIL) [Concomitant]
     Indication: ANALGESIC THERAPY
  2. SEROQUEL XR [Suspect]
     Indication: BIPOLAR I DISORDER
     Dosage: 400 MG, ONE AT MORNING AND ONE AT BEDTIME
     Route: 048
     Dates: start: 20050101
  3. SYNTHROID [Concomitant]
     Indication: HYPOTHYROIDISM

REACTIONS (7)
  - PAIN [None]
  - HYPERTENSION [None]
  - MUSCULOSKELETAL STIFFNESS [None]
  - ARTHROPATHY [None]
  - PARAESTHESIA [None]
  - OSTEOARTHRITIS [None]
  - FATIGUE [None]
